FAERS Safety Report 4623178-3 (Version None)
Quarter: 2005Q1

REPORT INFORMATION
  Report Type: 
  Country: None (occurrence: None)
  Receive Date: 20050329
  Receipt Date: 20050316
  Transmission Date: 20050727
  Serious: Yes (Other)
  Sender: FDA-Public Use
  Company Number: 2005046181

PATIENT
  Age: 16 Year
  Sex: Male

DRUGS (1)
  1. ZOLOFT [Suspect]
     Indication: DEPRESSION
     Dosage: 25 MG (25 MG, 1 IN 1 D), ORAL
     Route: 048
     Dates: start: 20041201, end: 20050301

REACTIONS (5)
  - DEPRESSION [None]
  - HOSTILITY [None]
  - SELF MUTILATION [None]
  - TATTOO [None]
  - THERMAL BURN [None]
